FAERS Safety Report 4276155-9 (Version None)
Quarter: 2004Q1

REPORT INFORMATION
  Report Type: 
  Country: None (occurrence: None)
  Receive Date: 20040121
  Receipt Date: 20031114
  Transmission Date: 20041129
  Serious: No
  Sender: FDA-Public Use
  Company Number: US-GLAXOSMITHKLINE-A0439844A

PATIENT
  Age: 53 Year
  Sex: Female

DRUGS (4)
  1. VALTREX [Suspect]
     Dosage: 1G PER DAY
     Route: 048
  2. VIOXX [Concomitant]
  3. DETROL [Concomitant]
  4. PREMARIN [Concomitant]

REACTIONS (1)
  - DYSKINESIA [None]
